FAERS Safety Report 5788851-2 (Version None)
Quarter: 2008Q2

REPORT INFORMATION
  Report Type: 
  Country: None (occurrence: None)
  Receive Date: 20080626
  Receipt Date: 20071212
  Transmission Date: 20081010
  Serious: No
  Sender: FDA-Public Use
  Company Number: US-ASTRAZENECA-2007UW28349

PATIENT
  Age: 14 Year
  Sex: Female
  Weight: 61.2 kg

DRUGS (3)
  1. PULMICORT FLEXHALER [Suspect]
     Indication: ASTHMA
     Route: 055
     Dates: start: 20071108
  2. SINGULAIR [Concomitant]
  3. ZYRTEC [Concomitant]

REACTIONS (1)
  - DYSPNOEA [None]
